FAERS Safety Report 18353853 (Version 1)
Quarter: 2020Q4

REPORT INFORMATION
  Report Type: Spontaneous
  Country: JP (occurrence: JP)
  Receive Date: 20201006
  Receipt Date: 20201006
  Transmission Date: 20210114
  Serious: Yes (Death)
  Sender: FDA-Public Use
  Company Number: JP-ROCHE-2664661

PATIENT
  Age: 58 Year
  Sex: Female
  Weight: 49 kg

DRUGS (10)
  1. FLUOROURACIL. [Suspect]
     Active Substance: FLUOROURACIL
     Dosage: 80% ADMINISTERING?DATE OF LAST DOSE RECEIVED PRIOR TO THE EVENT ONSET: 10/JUL/2020
     Route: 040
     Dates: start: 20200221, end: 20200710
  2. AVASTIN [Suspect]
     Active Substance: BEVACIZUMAB
     Indication: COLON CANCER
     Dosage: 80% ADMINISTERING?DATE OF LAST DOSE RECEIVED: 31/JUL/2020
     Route: 041
     Dates: start: 20200221
  3. AVASTIN [Suspect]
     Active Substance: BEVACIZUMAB
     Dosage: 100% ADMINISTERING
     Route: 041
     Dates: start: 20200131, end: 20200131
  4. IRINOTECAN HYDROCHLORIDE HYDRATE [Suspect]
     Active Substance: IRINOTECAN HYDROCHLORIDE
     Dosage: 80% ADMINISTERING?DATE OF LAST DOSE RECEIVED PRIOR TO THE EVENT ONSET: 10/JUL/2020
     Route: 041
     Dates: start: 20200221
  5. FLUOROURACIL. [Suspect]
     Active Substance: FLUOROURACIL
     Indication: COLON CANCER
     Dosage: 100% ADMINISTERING
     Route: 040
     Dates: start: 20200131, end: 20200131
  6. LEVOFOLINATE CALCIUM [Suspect]
     Active Substance: LEVOLEUCOVORIN CALCIUM
     Indication: COLON CANCER
     Dosage: 100% ADMINISTERING
     Route: 041
     Dates: start: 20200131, end: 20200131
  7. FLUOROURACIL. [Suspect]
     Active Substance: FLUOROURACIL
     Dosage: 100% ADMINISTERING
     Route: 041
     Dates: start: 20200131, end: 20200131
  8. FLUOROURACIL. [Suspect]
     Active Substance: FLUOROURACIL
     Dosage: 80% ADMINISTERING?DATE OF LAST DOSE RECEIVED PRIOR TO THE EVENT ONSET: 10/JUL/2020
     Route: 041
     Dates: start: 20200221
  9. IRINOTECAN HYDROCHLORIDE HYDRATE [Suspect]
     Active Substance: IRINOTECAN HYDROCHLORIDE
     Indication: COLON CANCER
     Dosage: 100% ADMINISTERING
     Route: 041
     Dates: start: 20200131, end: 20200131
  10. LEVOFOLINATE CALCIUM [Suspect]
     Active Substance: LEVOLEUCOVORIN CALCIUM
     Dosage: 80% ADMINISTERING?DATE OF LAST DOSE RECEIVED PRIOR TO THE EVENT ONSET: 10/JUL/2020
     Route: 041
     Dates: start: 20200221

REACTIONS (3)
  - Disease progression [Fatal]
  - Duodenal ulcer perforation [Fatal]
  - Large intestine perforation [Fatal]

NARRATIVE: CASE EVENT DATE: 20200722
